FAERS Safety Report 15295283 (Version 2)
Quarter: 2018Q3

REPORT INFORMATION
  Report Type: Spontaneous
  Country: US (occurrence: US)
  Receive Date: 20180820
  Receipt Date: 20180911
  Transmission Date: 20181010
  Serious: No
  Sender: FDA-Public Use
  Company Number: US-GLAXOSMITHKLINE-US2018145452

PATIENT
  Age: 75 Year
  Sex: Male

DRUGS (2)
  1. ANORO ELLIPTA [Suspect]
     Active Substance: UMECLIDINIUM BROMIDE\VILANTEROL TRIFENATATE
     Indication: PRODUCT USED FOR UNKNOWN INDICATION
     Dosage: UNK UNK, U
     Route: 055
  2. INCRUSE ELLIPTA [Suspect]
     Active Substance: UMECLIDINIUM BROMIDE
     Indication: PRODUCT USED FOR UNKNOWN INDICATION
     Dosage: 62.5 MCG/MG, 1D
     Route: 055

REACTIONS (6)
  - Drug dose omission [Recovered/Resolved]
  - Wrong technique in device usage process [Unknown]
  - Product quality issue [Unknown]
  - Lower respiratory tract congestion [Recovered/Resolved with Sequelae]
  - Ankle operation [Unknown]
  - Ankle fracture [Recovering/Resolving]

NARRATIVE: CASE EVENT DATE: 20180530
